FAERS Safety Report 11734182 (Version 1)
Quarter: 2015Q4

REPORT INFORMATION
  Report Type: Spontaneous
  Country: DE (occurrence: DE)
  Receive Date: 20151113
  Receipt Date: 20151113
  Transmission Date: 20160304
  Serious: Yes (Other)
  Sender: FDA-Public Use
  Company Number: DE-WATSON-2015-23809

PATIENT
  Age: 7 Month

DRUGS (2)
  1. TRANEXAMIC ACID (ACTAVIS LABORATORIES FL) [Suspect]
     Active Substance: TRANEXAMIC ACID
     Indication: PRODUCT USED FOR UNKNOWN INDICATION
     Dosage: 50 MG/KG, SINGLE
     Route: 065
  2. TRANEXAMIC ACID (ACTAVIS LABORATORIES FL) [Suspect]
     Active Substance: TRANEXAMIC ACID
     Dosage: 50 MG/KG, SINGLE
     Route: 065

REACTIONS (1)
  - Generalised tonic-clonic seizure [Recovered/Resolved]
